FAERS Safety Report 23787636 (Version 2)
Quarter: 2024Q2

REPORT INFORMATION
  Report Type: Spontaneous
  Country: FR (occurrence: FR)
  Receive Date: 20240426
  Receipt Date: 20240625
  Transmission Date: 20240715
  Serious: Yes (Hospitalization, Other)
  Sender: FDA-Public Use
  Company Number: FR-AFSSAPS-AVNT2024000257

PATIENT
  Age: 21 Year
  Sex: Female

DRUGS (5)
  1. PREGABALIN [Suspect]
     Active Substance: PREGABALIN
     Indication: Product used for unknown indication
     Dosage: 800 MILLIGRAM, DAILY
     Route: 048
     Dates: start: 2022
  2. CANNABIS SATIVA SUBSP. INDICA TOP [Suspect]
     Active Substance: CANNABIS SATIVA SUBSP. INDICA TOP
     Indication: Product used for unknown indication
     Dosage: UNK (2 TO 6 JOINTS/D)
     Dates: start: 2015
  3. COCAINE [Suspect]
     Active Substance: COCAINE
     Indication: Product used for unknown indication
     Dosage: UNK (0.5 TO 1 G SHARED EVERY 2 DAYS)
     Dates: start: 2018
  4. COCAINE [Suspect]
     Active Substance: COCAINE
     Dosage: UNK (0.5 TO 1 G SHARED EVERY 2 DAYS)
     Route: 045
     Dates: start: 2018
  5. ALCOHOL [Suspect]
     Active Substance: ALCOHOL
     Indication: Product used for unknown indication
     Dosage: BINGE DRINKING 3X/WEEK (1 BOTTLE OF VODKA EVERY 2 DAYS)
     Route: 048
     Dates: start: 2016

REACTIONS (1)
  - Drug dependence [Not Recovered/Not Resolved]
